FAERS Safety Report 24551800 (Version 1)
Quarter: 2024Q4

REPORT INFORMATION
  Report Type: Report from Study
  Country: US (occurrence: US)
  Receive Date: 20241026
  Receipt Date: 20241026
  Transmission Date: 20250115
  Serious: Yes (Death, Other)
  Sender: TAKEDA
  Company Number: US-TAKEDA-2024TUS107748

PATIENT
  Sex: Male

DRUGS (2)
  1. VELAGLUCERASE ALFA [Suspect]
     Active Substance: VELAGLUCERASE ALFA
     Indication: Gaucher^s disease
     Dosage: 800 INTERNATIONAL UNIT, Q2WEEKS
     Route: 042
     Dates: start: 202409
  2. CEREZYME [Concomitant]
     Active Substance: IMIGLUCERASE
     Dosage: UNK
     Route: 065

REACTIONS (1)
  - Death [Fatal]
